FAERS Safety Report 7812681-0 (Version None)
Quarter: 2011Q4

REPORT INFORMATION
  Report Type: 
  Country: None (occurrence: None)
  Receive Date: 20111013
  Receipt Date: 20110930
  Transmission Date: 20120403
  Serious: Yes (Hospitalization)
  Sender: FDA-Public Use
  Company Number: US-ELI_LILLY_AND_COMPANY-US201110000333

PATIENT
  Age: 73 Year
  Sex: Male

DRUGS (2)
  1. ZYPREXA ZYDIS [Suspect]
     Dosage: 10 MG, QD
  2. ZYPREXA ZYDIS [Suspect]
     Indication: VASCULAR DEMENTIA
     Dosage: 10 MG, QD

REACTIONS (4)
  - RESTLESSNESS [None]
  - AGITATION [None]
  - AGGRESSION [None]
  - OFF LABEL USE [None]
